FAERS Safety Report 21175390 (Version 3)
Quarter: 2022Q3

REPORT INFORMATION
  Report Type: Spontaneous
  Country: ES (occurrence: ES)
  Receive Date: 20220805
  Receipt Date: 20220920
  Transmission Date: 20221027
  Serious: Yes (Hospitalization, Other)
  Sender: FDA-Public Use
  Company Number: ES-009507513-1707ESP008028

PATIENT
  Age: 55 Year
  Sex: Male

DRUGS (24)
  1. TEMOZOLOMIDE [Suspect]
     Active Substance: TEMOZOLOMIDE
     Indication: Glioblastoma multiforme
     Dosage: 150 MILLIGRAM/SQ. METER
     Route: 065
     Dates: start: 20170102, end: 20170213
  2. TEMOZOLOMIDE [Suspect]
     Active Substance: TEMOZOLOMIDE
     Dosage: 200 MILLIGRAM/SQ. METER, DAILY
     Route: 065
     Dates: start: 20160118, end: 20161204
  3. TEMOZOLOMIDE [Suspect]
     Active Substance: TEMOZOLOMIDE
     Dosage: 75 MILLIGRAM/SQ. METER, DAILY
     Route: 065
     Dates: start: 20160701, end: 20160708
  4. TEMOZOLOMIDE [Suspect]
     Active Substance: TEMOZOLOMIDE
     Dosage: 150 MILLIGRAM/SQ. METER
     Route: 065
     Dates: start: 20160920, end: 20160924
  5. DEPATUXIZUMAB MAFODOTIN [Suspect]
     Active Substance: DEPATUXIZUMAB MAFODOTIN
     Indication: Glioblastoma multiforme
     Dosage: 2 MILLIGRAM/KILOGRAM
     Route: 065
     Dates: start: 20170801, end: 20170801
  6. DEPATUXIZUMAB MAFODOTIN [Suspect]
     Active Substance: DEPATUXIZUMAB MAFODOTIN
     Dosage: 2 MILLIGRAM/KILOGRAM
     Route: 065
     Dates: start: 20160701, end: 20160715
  7. EMULIQUEN LAXANTE [PARAFFIN; SODIUM PICOSULFATE] [Concomitant]
     Indication: Glioblastoma multiforme
     Dosage: 7173.9 MILLIGRAM, DAILY
     Route: 065
     Dates: start: 20170201
  8. OMEPRAZOLE [Concomitant]
     Active Substance: OMEPRAZOLE
     Indication: Gastritis prophylaxis
     Dosage: 20 MILLIGRAM, DAILY
     Route: 065
     Dates: start: 20160606
  9. FENOFIBRATE [Concomitant]
     Active Substance: FENOFIBRATE
     Indication: Hypertriglyceridaemia
     Dosage: 160 MILLIGRAM, DAILY
     Route: 065
     Dates: start: 20170201
  10. VALPROIC ACID [Concomitant]
     Active Substance: VALPROIC ACID
     Indication: Prophylaxis
     Dosage: 200 MILLIGRAM, DAILY
     Route: 065
     Dates: start: 20160826
  11. DEXAMETHASONE [Concomitant]
     Active Substance: DEXAMETHASONE
     Indication: Urosepsis
     Dosage: 8 MILLIGRAM, DAILY
     Route: 065
     Dates: start: 20161128
  12. DEXAMETHASONE [Concomitant]
     Active Substance: DEXAMETHASONE
     Dosage: 3 MILLIGRAM, DAILY
     Route: 065
     Dates: start: 20170331
  13. LEVETIRACETAM [Concomitant]
     Active Substance: LEVETIRACETAM
     Indication: Prophylaxis
     Dosage: 3000 MILLIGRAM, DAILY
     Route: 065
     Dates: start: 20160826
  14. ZOFRAN [Concomitant]
     Active Substance: ONDANSETRON HYDROCHLORIDE
     Indication: Prophylaxis of nausea and vomiting
     Dosage: 16 MILLIGRAM, DAILY
     Route: 065
     Dates: start: 20170411, end: 20170415
  15. VIGAMOX [Concomitant]
     Active Substance: MOXIFLOXACIN HYDROCHLORIDE
     Indication: Mydriasis
     Dosage: 5 MILLIGRAM / MILLILITER QD
     Route: 065
     Dates: start: 20160721
  16. CYCLOPENTOLATE HYDROCHLORIDE [Concomitant]
     Active Substance: CYCLOPENTOLATE HYDROCHLORIDE
     Indication: Mydriasis
     Dosage: 10 MILLIGRAM / MILLILITER, QD
     Route: 065
     Dates: start: 20160721
  17. LACOSAMIDE [Concomitant]
     Active Substance: LACOSAMIDE
     Indication: Prophylaxis
     Dosage: 200 MILLIGRAM, DAILY
     Route: 065
     Dates: start: 20150826
  18. AMINO ACIDS NOS; CHLORAMPHENICOL; RETINOL [Concomitant]
     Indication: Ulcerative keratitis
     Dosage: 10000 INTERNATIONAL UNIT, TID
     Route: 065
     Dates: start: 20160721
  19. AQUORAL [Concomitant]
     Indication: Eye lubrication therapy
     Dosage: 0.4 PERCENT, DAILY
     Route: 065
     Dates: start: 20160721
  20. HYALURONATE SODIUM\TREHALOSE [Concomitant]
     Active Substance: HYALURONATE SODIUM\TREHALOSE
     Indication: Eye lubrication therapy
     Dosage: 9 PERCENT, DAILY
     Route: 065
     Dates: start: 20160721
  21. GANCICLOVIR [Concomitant]
     Active Substance: GANCICLOVIR
     Indication: Keratitis
     Dosage: 1.5 MILLIGRAM PER GRAM, BID
     Route: 065
     Dates: start: 20160721
  22. CHLORAMPHENICOL [Concomitant]
     Active Substance: CHLORAMPHENICOL
     Indication: Ulcerative keratitis
     Dosage: UNK, DAILY
     Route: 047
     Dates: start: 20160721
  23. RETINOL [Concomitant]
     Active Substance: RETINOL
     Indication: Ulcerative keratitis
     Dosage: UNK, DAILY
     Route: 047
     Dates: start: 20160721
  24. PIPERACILLIN SODIUM\TAZOBACTAM SODIUM [Concomitant]
     Active Substance: PIPERACILLIN SODIUM\TAZOBACTAM SODIUM
     Indication: Abdominal sepsis
     Dosage: 2 GRAM, DAILY
     Route: 040
     Dates: start: 20161215

REACTIONS (3)
  - Platelet disorder [Unknown]
  - Respiratory tract infection [Not Recovered/Not Resolved]
  - Hypernatraemia [Not Recovered/Not Resolved]

NARRATIVE: CASE EVENT DATE: 20170424
